FAERS Safety Report 5370028-6 (Version None)
Quarter: 2007Q2

REPORT INFORMATION
  Report Type: 
  Country: None (occurrence: None)
  Receive Date: 20070626
  Receipt Date: 20070614
  Transmission Date: 20071010
  Serious: Yes (Other)
  Sender: FDA-Public Use
  Company Number: PHEH2007US08809

PATIENT
  Age: 35 Year
  Sex: Female

DRUGS (1)
  1. LAMISIL [Suspect]
     Indication: RASH
     Dosage: 250 MG, QD
     Route: 048
     Dates: start: 20070613

REACTIONS (1)
  - VAGINAL HAEMORRHAGE [None]
